FAERS Safety Report 20151542 (Version 1)
Quarter: 2021Q4

REPORT INFORMATION
  Report Type: Spontaneous
  Country: NI (occurrence: None)
  Receive Date: 20211206
  Receipt Date: 20211206
  Transmission Date: 20220303
  Serious: Yes (Hospitalization, Other)
  Sender: FDA-Public Use
  Company Number: NI-ROCHE-2968686

PATIENT
  Sex: Male

DRUGS (2)
  1. XELODA [Suspect]
     Active Substance: CAPECITABINE
     Indication: Rectal cancer
     Dosage: DOSE AND FREQUENCY WERE NOT REPORTED - 5 CYCLES
     Route: 048
     Dates: start: 20190903, end: 20191210
  2. OXALIPLATIN [Concomitant]
     Active Substance: OXALIPLATIN
     Route: 065

REACTIONS (3)
  - Pelvic abscess [Unknown]
  - Disease progression [Unknown]
  - COVID-19 [Unknown]

NARRATIVE: CASE EVENT DATE: 20190915
